FAERS Safety Report 5033189-4 (Version None)
Quarter: 2006Q2

REPORT INFORMATION
  Report Type: 
  Country: None (occurrence: None)
  Receive Date: 20060620
  Receipt Date: 20060615
  Transmission Date: 20061013
  Serious: Yes (Life-Threatening, Hospitalization)
  Sender: FDA-Public Use
  Company Number: S06-USA-02308-01

PATIENT
  Sex: Female

DRUGS (7)
  1. CAMPRAL [Suspect]
     Indication: ABSTAINS FROM ALCOHOL
     Dosage: 666 MG TID PO
     Route: 048
     Dates: start: 20060601, end: 20060613
  2. PROZAC [Concomitant]
  3. LAMICTAL [Concomitant]
  4. WELLBUTRIN (BUPROPION HDYROCHLORIDE) [Concomitant]
  5. SEROQUEL [Concomitant]
  6. BUSPAR [Concomitant]
  7. IBUPROFEN [Concomitant]

REACTIONS (9)
  - BLOOD BICARBONATE DECREASED [None]
  - BLOOD POTASSIUM INCREASED [None]
  - DIALYSIS [None]
  - DIARRHOEA [None]
  - FALL [None]
  - JOINT INJURY [None]
  - METABOLIC ACIDOSIS [None]
  - RENAL FAILURE [None]
  - RESPIRATORY DISTRESS [None]
